FAERS Safety Report 17107236 (Version 1)
Quarter: 2019Q4

REPORT INFORMATION
  Report Type: Spontaneous
  Country: FR (occurrence: FR)
  Receive Date: 20191203
  Receipt Date: 20191203
  Transmission Date: 20200122
  Serious: Yes (Hospitalization)
  Sender: FDA-Public Use
  Company Number: FR-MYLANLABS-2019M1116240

PATIENT
  Age: 67 Year
  Sex: Male
  Weight: 74 kg

DRUGS (2)
  1. CISPLATIN MYLAN [Suspect]
     Active Substance: CISPLATIN
     Indication: TRANSITIONAL CELL CARCINOMA
     Dosage: 20MG/M2 DE J1 ? J5
     Dates: start: 20150928, end: 20151002
  2. FLUOROURACIL. [Suspect]
     Active Substance: FLUOROURACIL
     Indication: TRANSITIONAL CELL CARCINOMA
     Dosage: 1850 MILLIGRAM, QD
     Dates: start: 20150928, end: 20151002

REACTIONS (1)
  - Acute kidney injury [Recovering/Resolving]

NARRATIVE: CASE EVENT DATE: 201510
